FAERS Safety Report 5036256-4 (Version None)
Quarter: 2006Q2

REPORT INFORMATION
  Report Type: 
  Country: None (occurrence: None)
  Receive Date: 20060601
  Receipt Date: 20060428
  Transmission Date: 20061013
  Serious: No
  Sender: FDA-Public Use
  Company Number: US200605000182

PATIENT
  Age: 73 Year
  Sex: Female

DRUGS (11)
  1. CYMBALTA [Suspect]
     Indication: FIBROMYALGIA
     Dosage: 30 MG
     Dates: start: 20060426
  2. PREGABALIN (PREGABALIN) [Concomitant]
  3. LIPITOR [Concomitant]
  4. NADOLOL [Concomitant]
  5. LEVOXYL [Concomitant]
  6. XANAX /USA/ (ALPRAZOLAM) [Concomitant]
  7. TRIAMTEX (HYDROCHLOROTHIAZIDE, TRIAMTERENE) [Concomitant]
  8. PLAVIX [Concomitant]
  9. ADALAT [Concomitant]
  10. TIMOPTIC [Concomitant]
  11. TRAVATAN [Concomitant]

REACTIONS (7)
  - ASTHENIA [None]
  - CHILLS [None]
  - COLD SWEAT [None]
  - FEELING HOT [None]
  - HEART RATE INCREASED [None]
  - HYPERHIDROSIS [None]
  - INSOMNIA [None]
